FAERS Safety Report 8417646-6 (Version None)
Quarter: 2012Q2

REPORT INFORMATION
  Report Type: 
  Country: None (occurrence: None)
  Receive Date: 20120606
  Receipt Date: 20120530
  Transmission Date: 20120825
  Serious: Yes (Hospitalization)
  Sender: FDA-Public Use
  Company Number: US-BIOMARINP-002573

PATIENT
  Sex: Male
  Weight: 94.3 kg

DRUGS (3)
  1. XP MAXAMUM [Concomitant]
     Indication: PRODUCT USED FOR UNKNOWN INDICATION
     Dates: start: 20120403
  2. ANTIBIOTICS [Concomitant]
  3. KUVAN [Suspect]
     Indication: PHENYLKETONURIA
     Route: 048
     Dates: start: 20090101

REACTIONS (3)
  - POST PROCEDURAL HAEMORRHAGE [None]
  - NEPHROLITHIASIS [None]
  - UNEVALUABLE EVENT [None]
